FAERS Safety Report 8279483-5 (Version None)
Quarter: 2012Q2

REPORT INFORMATION
  Report Type: 
  Country: None (occurrence: None)
  Receive Date: 20120412
  Receipt Date: 20120223
  Transmission Date: 20120825
  Serious: No
  Sender: FDA-Public Use
  Company Number: US-ASTRAZENECA-2010SE40993

PATIENT
  Age: 55 Year
  Sex: Female

DRUGS (3)
  1. CRESTOR [Concomitant]
  2. SYNTHROID [Concomitant]
  3. NEXIUM [Suspect]
     Route: 048

REACTIONS (6)
  - GASTROOESOPHAGEAL REFLUX DISEASE [None]
  - THYROID DISORDER [None]
  - WEIGHT INCREASED [None]
  - DRUG DOSE OMISSION [None]
  - BLOOD CALCIUM DECREASED [None]
  - DYSPEPSIA [None]
